FAERS Safety Report 4661117-X (Version None)
Quarter: 2005Q2

REPORT INFORMATION
  Report Type: 
  Country: None (occurrence: None)
  Receive Date: 20050511
  Receipt Date: 20050509
  Transmission Date: 20051028
  Serious: No
  Sender: FDA-Public Use
  Company Number: A500625410/PHRM2005FRO1280

PATIENT
  Age: 87 Year
  Sex: Male

DRUGS (5)
  1. AK-FLUOR [Suspect]
     Indication: ANGIOGRAM
     Dosage: INTRAVENOUS
     Route: 042
  2. CELESTENE               (BETAMETHSONE) [Concomitant]
  3. ZYRTEC [Concomitant]
  4. XYZALL                  (LEVOCETORIZINE) [Concomitant]
  5. PREDNISONE TAB [Concomitant]

REACTIONS (2)
  - FEELING HOT [None]
  - URTICARIA GENERALISED [None]
